FAERS Safety Report 26086219 (Version 1)
Quarter: 2025Q4

REPORT INFORMATION
  Report Type: Spontaneous
  Country: US (occurrence: US)
  Receive Date: 20251125
  Receipt Date: 20251125
  Transmission Date: 20260118
  Serious: No
  Sender: REDHILL BIOPHARMA
  Company Number: US-RDH-RDH202511-000018

PATIENT
  Age: 79 Year
  Sex: Male

DRUGS (2)
  1. TALICIA [Suspect]
     Active Substance: AMOXICILLIN\OMEPRAZOLE MAGNESIUM\RIFABUTIN
     Indication: Product used for unknown indication
     Dosage: BASED ON THE INSTRUCTIONS HE?TOOK 4 FOR BREAKFAST, 4 FOR LUNCH AND 4 FOR DINNER
     Route: 065
     Dates: start: 20251106
  2. CYMBALTA [Concomitant]
     Active Substance: DULOXETINE HYDROCHLORIDE
     Indication: Product used for unknown indication
     Dosage: HAD BEEN TAKING IT FOR YEARS
     Route: 065

REACTIONS (8)
  - Sleep disorder [Unknown]
  - Erythema [Unknown]
  - Bowel movement irregularity [Unknown]
  - Skin haemorrhage [Unknown]
  - Abdominal pain upper [Unknown]
  - Rash pruritic [Unknown]
  - Decreased appetite [Unknown]
  - Peripheral swelling [Unknown]
